FAERS Safety Report 5317623-8 (Version None)
Quarter: 2007Q2

REPORT INFORMATION
  Report Type: 
  Country: None (occurrence: None)
  Receive Date: 20070507
  Receipt Date: 20070430
  Transmission Date: 20071010
  Serious: Yes (Hospitalization)
  Sender: FDA-Public Use
  Company Number: US-AMGEN-US222225

PATIENT
  Sex: Male

DRUGS (5)
  1. ARANESP [Suspect]
     Indication: DRUG USE FOR UNKNOWN INDICATION
     Route: 058
     Dates: start: 20070330, end: 20070410
  2. BUMEX [Concomitant]
     Route: 065
  3. K-DUR 10 [Concomitant]
     Route: 065
  4. COUMADIN [Concomitant]
     Route: 065
  5. COREG [Concomitant]
     Route: 065

REACTIONS (4)
  - ABDOMINAL PAIN UPPER [None]
  - PLEURAL HAEMORRHAGE [None]
  - SPLENIC HAEMATOMA [None]
  - URTICARIA [None]
